FAERS Safety Report 14523283 (Version 1)
Quarter: 2018Q1

REPORT INFORMATION
  Report Type: Spontaneous
  Country: US (occurrence: US)
  Receive Date: 20180212
  Receipt Date: 20180212
  Transmission Date: 20180509
  Serious: No
  Sender: FDA-Public Use
  Company Number: US-009507513-1802USA004526

PATIENT
  Sex: Female

DRUGS (1)
  1. ISENTRESS [Suspect]
     Active Substance: RALTEGRAVIR POTASSIUM
     Dosage: 400 MG, BID (400 MG/TWICE DAILY)
     Route: 048

REACTIONS (3)
  - Product use complaint [Unknown]
  - Dysphagia [Unknown]
  - Wrong technique in product usage process [Unknown]
